FAERS Safety Report 7810026-3 (Version None)
Quarter: 2011Q4

REPORT INFORMATION
  Report Type: 
  Country: None (occurrence: None)
  Receive Date: 20111012
  Receipt Date: 20110623
  Transmission Date: 20120403
  Serious: No
  Sender: FDA-Public Use
  Company Number: US-GLAXOSMITHKLINE-A0933983A

PATIENT
  Age: 58 Year
  Sex: Male

DRUGS (1)
  1. JALYN [Suspect]
     Indication: PROSTATOMEGALY
     Dosage: 1CAP UNKNOWN
     Route: 048
     Dates: end: 20110621

REACTIONS (2)
  - BREAST ENLARGEMENT [None]
  - BREAST TENDERNESS [None]
